FAERS Safety Report 5461008-0 (Version None)
Quarter: 2007Q3

REPORT INFORMATION
  Report Type: 
  Country: None (occurrence: None)
  Receive Date: 20070816
  Receipt Date: 20070702
  Transmission Date: 20080115
  Serious: Yes (Other)
  Sender: FDA-Public Use
  Company Number: 07C212

PATIENT
  Age: 49 Year
  Sex: Female

DRUGS (4)
  1. VITAMIN A + VITAMIN D OINTMENT [Suspect]
     Indication: EYE OPERATION
     Dosage: 2 TIMES A DAY
     Dates: start: 20070630
  2. VITAMIN A + VITAMIN D OINTMENT [Suspect]
     Indication: SKIN COSMETIC PROCEDURE
     Dosage: 2 TIMES A DAY
     Dates: start: 20070630
  3. VITAMIN A + VITAMIN D OINTMENT [Suspect]
     Indication: EYE OPERATION
     Dosage: 2 TIMES A DAY
     Dates: start: 20070701
  4. VITAMIN A + VITAMIN D OINTMENT [Suspect]
     Indication: SKIN COSMETIC PROCEDURE
     Dosage: 2 TIMES A DAY
     Dates: start: 20070701

REACTIONS (1)
  - ERYTHEMA [None]
